FAERS Safety Report 22373544 (Version 1)
Quarter: 2023Q2

REPORT INFORMATION
  Report Type: Spontaneous
  Country: US (occurrence: None)
  Receive Date: 20230526
  Receipt Date: 20230526
  Transmission Date: 20230722
  Serious: Yes (Hospitalization)
  Sender: FDA-Public Use
  Company Number: None

PATIENT
  Sex: Female

DRUGS (9)
  1. NORDITROPIN [Suspect]
     Active Substance: SOMATROPIN
     Indication: Hypopituitarism
     Dosage: 30 MG/3 ML SUBCUTANEOUS??INJECT 1.2 MG UNDER THE SKIN (SUBCUTANEOUS INJECTION) EVERY DAY?
     Route: 058
     Dates: start: 20230502
  2. NORDITROPIN [Suspect]
     Active Substance: SOMATROPIN
     Dosage: FREQUENCY : DAILY;?
     Route: 058
  3. GENOTROPIN [Concomitant]
  4. JUNEL FE 1/20 [Concomitant]
     Active Substance: ETHINYL ESTRADIOL\NORETHINDRONE ACETATE
  5. MELOXICAM [Concomitant]
  6. METFORMIN [Concomitant]
  7. ROSUVASTATIN [Concomitant]
  8. TIROSINT [Concomitant]
  9. TYROSINE [Concomitant]

REACTIONS (2)
  - Surgery [None]
  - Therapy interrupted [None]
